FAERS Safety Report 12788313 (Version 1)
Quarter: 2016Q3

REPORT INFORMATION
  Report Type: Report from Study
  Country: US (occurrence: US)
  Receive Date: 20160928
  Receipt Date: 20160928
  Transmission Date: 20161109
  Serious: Yes (Hospitalization)
  Sender: FDA-Public Use
  Company Number: US-ABBVIE-16K-163-1734233-00

PATIENT
  Age: 73 Year
  Sex: Female

DRUGS (1)
  1. HUMIRA [Suspect]
     Active Substance: ADALIMUMAB
     Indication: MUSCLE DISORDER
     Route: 058
     Dates: start: 201603

REACTIONS (2)
  - Volvulus [Unknown]
  - Large intestinal obstruction [Unknown]

NARRATIVE: CASE EVENT DATE: 201609
